FAERS Safety Report 25603361 (Version 5)
Quarter: 2025Q4

REPORT INFORMATION
  Report Type: Spontaneous
  Country: US (occurrence: US)
  Receive Date: 20250724
  Receipt Date: 20251107
  Transmission Date: 20260118
  Serious: No
  Sender: BLUEPRINT MEDICINES
  Company Number: US-Blueprint Medicines Corporation-2025-AER-01603

PATIENT
  Age: 64 Year
  Sex: Female

DRUGS (4)
  1. AYVAKIT [Suspect]
     Active Substance: AVAPRITINIB
     Indication: Advanced systemic mastocytosis
     Route: 065
     Dates: start: 20250526
  2. AYVAKIT [Suspect]
     Active Substance: AVAPRITINIB
     Route: 048
     Dates: start: 20250526
  3. AYVAKIT [Suspect]
     Active Substance: AVAPRITINIB
     Dosage: EVERY MORNING
     Route: 048
     Dates: start: 20250526
  4. AYVAKIT [Suspect]
     Active Substance: AVAPRITINIB
     Dosage: AFTERNOON
     Route: 048
     Dates: start: 20250605

REACTIONS (19)
  - Headache [Unknown]
  - Nausea [Unknown]
  - Migraine [Unknown]
  - Ear swelling [Unknown]
  - Eye swelling [Unknown]
  - Rash [Unknown]
  - Alopecia [Unknown]
  - Blood glucose decreased [Unknown]
  - Influenza like illness [Unknown]
  - Back pain [Unknown]
  - Osteoarthritis [Unknown]
  - Renal function test abnormal [Unknown]
  - Hair colour changes [Unknown]
  - Tryptase increased [Unknown]
  - Burning sensation [Unknown]
  - Photosensitivity reaction [Unknown]
  - Secretion discharge [Unknown]
  - Paraesthesia [Unknown]
  - Product dose omission issue [Unknown]

NARRATIVE: CASE EVENT DATE: 20250929
